FAERS Safety Report 17122165 (Version 1)
Quarter: 2019Q4

REPORT INFORMATION
  Report Type: Report from Study
  Country: AT (occurrence: AT)
  Receive Date: 20191206
  Receipt Date: 20191206
  Transmission Date: 20200122
  Serious: Yes (Death)
  Sender: FDA-Public Use
  Company Number: AT-ROCHE-2490221

PATIENT
  Age: 65 Year
  Sex: Female

DRUGS (1)
  1. ATEZOLIZUMAB. [Suspect]
     Active Substance: ATEZOLIZUMAB
     Indication: CUTANEOUS T-CELL LYMPHOMA
     Dosage: LAST DOSE AND DATE PRIOR TO SAE :1200 MG AND 29/AUG/2019
     Route: 042
     Dates: start: 20190829, end: 20190829

REACTIONS (2)
  - Multiple organ dysfunction syndrome [Fatal]
  - Sepsis [Fatal]

NARRATIVE: CASE EVENT DATE: 20190921
